FAERS Safety Report 4359801-0 (Version None)
Quarter: 2004Q2

REPORT INFORMATION
  Report Type: 
  Country: None (occurrence: None)
  Receive Date: 20040518
  Receipt Date: 20040517
  Transmission Date: 20050107
  Serious: Yes (Life-Threatening, Hospitalization)
  Sender: FDA-Public Use
  Company Number: FR-GLAXOSMITHKLINE-B0332913A

PATIENT
  Age: 60 Year
  Sex: Male

DRUGS (1)
  1. DEROXAT [Suspect]
     Dosage: 20MG PER DAY
     Route: 048
     Dates: start: 20040319

REACTIONS (5)
  - CARDIO-RESPIRATORY ARREST [None]
  - CONVULSION [None]
  - HOT FLUSH [None]
  - HYPERHIDROSIS [None]
  - MALAISE [None]
